FAERS Safety Report 20165894 (Version 2)
Quarter: 2021Q4

REPORT INFORMATION
  Report Type: Spontaneous
  Country: US (occurrence: US)
  Receive Date: 20211209
  Receipt Date: 20211223
  Transmission Date: 20220303
  Serious: Yes (Hospitalization)
  Sender: FDA-Public Use
  Company Number: US-MYLANLABS-2021M1090630

PATIENT
  Age: 74 Year
  Sex: Female

DRUGS (3)
  1. OCTREOTIDE [Suspect]
     Active Substance: OCTREOTIDE
     Indication: Drug-induced liver injury
     Dosage: UNK
     Route: 065
  2. RIFAXIMIN [Suspect]
     Active Substance: RIFAXIMIN
     Indication: Drug-induced liver injury
     Dosage: UNK
     Route: 065
  3. CHOLESTYRAMINE [Suspect]
     Active Substance: CHOLESTYRAMINE
     Indication: Drug-induced liver injury
     Dosage: UNK
     Route: 065

REACTIONS (2)
  - Drug ineffective [Unknown]
  - Off label use [Unknown]
